FAERS Safety Report 5933343-0 (Version None)
Quarter: 2008Q4

REPORT INFORMATION
  Report Type: 
  Country: None (occurrence: None)
  Receive Date: 20081028
  Receipt Date: 20081017
  Transmission Date: 20090506
  Serious: Yes (Hospitalization)
  Sender: FDA-Public Use
  Company Number: FR-PFIZER INC-2008088379

PATIENT
  Sex: Male

DRUGS (2)
  1. SUTENT [Suspect]
     Indication: THYROID CANCER METASTATIC
     Route: 048
     Dates: start: 20080527
  2. ZOMETA [Concomitant]
     Dates: start: 20080401, end: 20080911

REACTIONS (2)
  - HYPERKERATOSIS [None]
  - PAIN IN EXTREMITY [None]
